FAERS Safety Report 9249894 (Version 1)
Quarter: 2013Q2

REPORT INFORMATION
  Report Type: Spontaneous
  Country: US (occurrence: US)
  Receive Date: 20130423
  Receipt Date: 20130423
  Transmission Date: 20140414
  Serious: Yes (Life-Threatening, Hospitalization)
  Sender: FDA-Public Use
  Company Number: US-MYLANLABS-2013S1008260

PATIENT
  Age: 35 Year
  Sex: Male

DRUGS (2)
  1. VANCOMYCIN [Suspect]
     Indication: EVIDENCE BASED TREATMENT
     Dosage: 1.5G LOADING DOSE
     Route: 042
  2. VANCOMYCIN [Suspect]
     Indication: EVIDENCE BASED TREATMENT
     Route: 065

REACTIONS (1)
  - Toxic epidermal necrolysis [Recovered/Resolved]
